FAERS Safety Report 7670254 (Version 7)
Quarter: 2013Q3

REPORT INFORMATION
  Report Type: Spontaneous
  Country: US (occurrence: US)
  Receive Date: 20101116
  Receipt Date: 20130819
  Transmission Date: 20140515
  Serious: Yes (Other)
  Sender: FDA-Public Use
  Company Number: US-JNJFOC-20101103042

PATIENT
  Age: 75 Year
  Sex: Female

DRUGS (9)
  1. DOXIL [Suspect]
     Indication: OVARIAN EPITHELIAL CANCER RECURRENT
     Dosage: UNSPECIFIED DOSE EVERY 4-7 WEEKS FOR 8 YEARS;  CUMULATIVE DOSE 1800 MG/M2
     Route: 042
     Dates: start: 1997, end: 20080429
  2. CARBOPLATIN [Suspect]
     Indication: PRODUCT USED FOR UNKNOWN INDICATION
     Route: 065
     Dates: end: 20080226
  3. LASIX [Concomitant]
     Route: 065
     Dates: end: 20081119
  4. POTASSIUM CHLORIDE [Concomitant]
     Route: 065
     Dates: end: 20081119
  5. LOPRESSOR [Concomitant]
     Route: 065
     Dates: end: 20081119
  6. ASA [Concomitant]
     Route: 065
     Dates: end: 20081119
  7. DIOVAN [Concomitant]
     Route: 065
     Dates: end: 20081119
  8. ZOCOR [Concomitant]
     Route: 065
     Dates: end: 20081119
  9. CLINDAMYCIN [Concomitant]
     Dosage: RINSE
     Route: 065
     Dates: end: 20081119

REACTIONS (1)
  - Squamous cell carcinoma of the tongue [Unknown]
